FAERS Safety Report 5623958-1 (Version None)
Quarter: 2008Q1

REPORT INFORMATION
  Report Type: 
  Country: None (occurrence: None)
  Receive Date: 20080213
  Receipt Date: 20080212
  Transmission Date: 20080703
  Serious: Yes (Other)
  Sender: FDA-Public Use
  Company Number: FR-SP-2008-00206

PATIENT
  Age: 82 Year
  Sex: Male

DRUGS (1)
  1. IMMUCYST [Suspect]
     Indication: TRANSITIONAL CELL CARCINOMA
     Route: 065
     Dates: start: 20070220, end: 20070701

REACTIONS (1)
  - TUBERCULOSIS BLADDER [None]
